FAERS Safety Report 14286693 (Version 1)
Quarter: 2017Q4

REPORT INFORMATION
  Report Type: Spontaneous
  Country: JP (occurrence: JP)
  Receive Date: 20171214
  Receipt Date: 20171214
  Transmission Date: 20180321
  Serious: Yes (Death, Other)
  Sender: FDA-Public Use
  Company Number: JP-BAYER-2017-216443

PATIENT
  Sex: Female

DRUGS (1)
  1. NEXAVAR [Suspect]
     Active Substance: SORAFENIB
     Indication: THYROID CANCER
     Dosage: 400 MG, BID
     Route: 048

REACTIONS (4)
  - Aggression [Recovering/Resolving]
  - Cognitive disorder [Recovering/Resolving]
  - Thyroid cancer [Fatal]
  - Posterior reversible encephalopathy syndrome [Recovering/Resolving]
